FAERS Safety Report 8357703-6 (Version None)
Quarter: 2012Q2

REPORT INFORMATION
  Report Type: 
  Country: None (occurrence: None)
  Receive Date: 20120511
  Receipt Date: 20120504
  Transmission Date: 20120825
  Serious: Yes (Death, Hospitalization)
  Sender: FDA-Public Use
  Company Number: A0976647A

PATIENT
  Age: 36 Year
  Sex: Female

DRUGS (8)
  1. LORAZEPAM [Suspect]
     Indication: PRODUCT USED FOR UNKNOWN INDICATION
     Dosage: 10 MG,
  2. FLUOXETINE [Suspect]
     Indication: PRODUCT USED FOR UNKNOWN INDICATION
     Dosage: 200 MG
  3. BROMAZEPAM (FORMULATION UNKNOWN) (GENERIC) (BROMAZEPAM) [Suspect]
     Indication: PRODUCT USED FOR UNKNOWN INDICATION
     Dosage: 60 MG,
  4. ALPRAZOLAM [Suspect]
     Indication: PRODUCT USED FOR UNKNOWN INDICATION
     Dosage: 15 MG,
  5. MIDAZOLAM [Suspect]
     Indication: PRODUCT USED FOR UNKNOWN INDICATION
     Dosage: 75 MG,
  6. ESTAZOLAM [Suspect]
     Indication: PRODUCT USED FOR UNKNOWN INDICATION
     Dosage: 20 MG
  7. PROPRANOLOL HYDROCHLORIDE [Suspect]
     Indication: PRODUCT USED FOR UNKNOWN INDICATION
     Dosage: 300 MG
  8. MOCLOBEMIDE (FORMULATION UNKNOWN) (MOCLOBEMIDE) [Suspect]
     Indication: PRODUCT USED FOR UNKNOWN INDICATION
     Dosage: 4500 MG

REACTIONS (20)
  - SINUS TACHYCARDIA [None]
  - COMA [None]
  - OXYGEN SATURATION DECREASED [None]
  - ELECTROCARDIOGRAM QT PROLONGED [None]
  - LEUKOCYTOSIS [None]
  - VENTRICULAR ARRHYTHMIA [None]
  - DISSEMINATED INTRAVASCULAR COAGULATION [None]
  - BRADYCARDIA [None]
  - TOXICITY TO VARIOUS AGENTS [None]
  - ELECTROCARDIOGRAM QRS COMPLEX PROLONGED [None]
  - MOUTH HAEMORRHAGE [None]
  - THROMBOCYTOPENIA [None]
  - BLOOD CREATINE INCREASED [None]
  - CIRCULATORY COLLAPSE [None]
  - BLOOD GLUCOSE INCREASED [None]
  - EXTENSOR PLANTAR RESPONSE [None]
  - SEROTONIN SYNDROME [None]
  - BLOOD CREATINE PHOSPHOKINASE INCREASED [None]
  - MULTIPLE DRUG OVERDOSE INTENTIONAL [None]
  - DRUG INTERACTION [None]
